FAERS Safety Report 9742071 (Version 1)
Quarter: 2013Q4

REPORT INFORMATION
  Report Type: Other
  Country: JP (occurrence: JP)
  Receive Date: 20131210
  Receipt Date: 20131210
  Transmission Date: 20140711
  Serious: Yes (Hospitalization, Other)
  Sender: FDA-Public Use
  Company Number: JP-BRISTOL-MYERS SQUIBB COMPANY-19873561

PATIENT
  Age: 84 Year
  Sex: Female

DRUGS (1)
  1. BYETTA PEN DISPOSABLE [Suspect]
     Indication: TYPE 2 DIABETES MELLITUS
     Dosage: BYETTA SUBCUTANEOUS INJECTION 5 MICRO GRAM PEN 300
     Route: 058
     Dates: start: 201205, end: 201212

REACTIONS (4)
  - Glycosylated haemoglobin increased [Unknown]
  - Hyperglycaemia [Unknown]
  - Cholangitis [Unknown]
  - Bile duct stone [Unknown]
